FAERS Safety Report 20195835 (Version 3)
Quarter: 2022Q1

REPORT INFORMATION
  Report Type: Spontaneous
  Country: US (occurrence: US)
  Receive Date: 20211216
  Receipt Date: 20220104
  Transmission Date: 20220423
  Serious: Yes (Hospitalization)
  Sender: FDA-Public Use
  Company Number: US-NAPO PHARMACEUTICALS-2021US008510

PATIENT
  Age: 57 Year
  Sex: Male

DRUGS (2)
  1. MYTESI [Suspect]
     Active Substance: CROFELEMER
     Indication: Diarrhoea
     Dosage: UNK
     Route: 065
  2. MYTESI [Suspect]
     Active Substance: CROFELEMER
     Dosage: UNK
     Route: 065

REACTIONS (3)
  - Bone loss [Recovered/Resolved]
  - Therapy interrupted [Recovered/Resolved]
  - Off label use [Unknown]

NARRATIVE: CASE EVENT DATE: 20210901
